FAERS Safety Report 19059242 (Version 1)
Quarter: 2021Q1

REPORT INFORMATION
  Report Type: Spontaneous
  Country: BE (occurrence: BE)
  Receive Date: 20210325
  Receipt Date: 20210325
  Transmission Date: 20210420
  Serious: Yes (Other)
  Sender: FDA-Public Use
  Company Number: BE-STRIDES ARCOLAB LIMITED-2021SP003353

PATIENT
  Age: 59 Year
  Sex: Male

DRUGS (33)
  1. CIPROFLOXACIN. [Suspect]
     Active Substance: CIPROFLOXACIN
     Indication: HERPES SIMPLEX
  2. VANCOMYCIN [Suspect]
     Active Substance: VANCOMYCIN
     Indication: HERPES SIMPLEX
  3. VANCOMYCIN [Suspect]
     Active Substance: VANCOMYCIN
     Indication: STAPHYLOCOCCAL INFECTION
  4. OXACILLIN [Suspect]
     Active Substance: OXACILLIN SODIUM
     Indication: STAPHYLOCOCCAL INFECTION
  5. OXACILLIN [Suspect]
     Active Substance: OXACILLIN SODIUM
     Indication: PSEUDOMONAS INFECTION
  6. FLUCLOXACILLIN [Suspect]
     Active Substance: FLUCLOXACILLIN
     Indication: STAPHYLOCOCCAL INFECTION
  7. ACYCLOVIR [ACICLOVIR] [Suspect]
     Active Substance: ACYCLOVIR
     Indication: ENTEROBACTER INFECTION
     Dosage: UNK
     Route: 065
  8. ACYCLOVIR [ACICLOVIR] [Suspect]
     Active Substance: ACYCLOVIR
     Indication: STAPHYLOCOCCAL INFECTION
  9. CIPROFLOXACIN. [Suspect]
     Active Substance: CIPROFLOXACIN
     Indication: ENTEROBACTER INFECTION
     Dosage: UNK
     Route: 065
  10. CEFTAZIDIME. [Suspect]
     Active Substance: CEFTAZIDIME
     Indication: HERPES SIMPLEX
  11. CEFTAZIDIME. [Suspect]
     Active Substance: CEFTAZIDIME
     Indication: PSEUDOMONAS INFECTION
  12. TEMOCILLIN [Suspect]
     Active Substance: TEMOCILLIN
     Indication: ENTEROBACTER INFECTION
     Dosage: UNK
     Route: 065
  13. CIPROFLOXACIN. [Suspect]
     Active Substance: CIPROFLOXACIN
     Indication: STAPHYLOCOCCAL INFECTION
  14. OXACILLIN [Suspect]
     Active Substance: OXACILLIN SODIUM
     Indication: ENTEROBACTER INFECTION
     Dosage: UNK
     Route: 065
  15. FLUCLOXACILLIN [Suspect]
     Active Substance: FLUCLOXACILLIN
     Indication: ENTEROBACTER INFECTION
     Dosage: UNK
     Route: 065
  16. GANCICLOVIR. [Suspect]
     Active Substance: GANCICLOVIR
     Indication: STAPHYLOCOCCAL INFECTION
  17. FLUCLOXACILLIN [Suspect]
     Active Substance: FLUCLOXACILLIN
     Indication: PSEUDOMONAS INFECTION
  18. HYDROXYCHLOROQUINE [Suspect]
     Active Substance: HYDROXYCHLOROQUINE
     Indication: COVID-19
     Dosage: UNK
     Route: 065
  19. OXACILLIN [Suspect]
     Active Substance: OXACILLIN SODIUM
     Indication: HERPES SIMPLEX
  20. CEFTAZIDIME. [Suspect]
     Active Substance: CEFTAZIDIME
     Indication: ENTEROBACTER INFECTION
     Dosage: UNK
     Route: 065
  21. VANCOMYCIN [Suspect]
     Active Substance: VANCOMYCIN
     Indication: PSEUDOMONAS INFECTION
  22. CEFTAZIDIME. [Suspect]
     Active Substance: CEFTAZIDIME
     Indication: STAPHYLOCOCCAL INFECTION
  23. ACYCLOVIR [ACICLOVIR] [Suspect]
     Active Substance: ACYCLOVIR
     Indication: PSEUDOMONAS INFECTION
  24. CIPROFLOXACIN. [Suspect]
     Active Substance: CIPROFLOXACIN
     Indication: PSEUDOMONAS INFECTION
  25. VANCOMYCIN [Suspect]
     Active Substance: VANCOMYCIN
     Indication: ENTEROBACTER INFECTION
     Dosage: UNK
     Route: 065
  26. GANCICLOVIR. [Suspect]
     Active Substance: GANCICLOVIR
     Indication: PSEUDOMONAS INFECTION
  27. TEMOCILLIN [Suspect]
     Active Substance: TEMOCILLIN
     Indication: STAPHYLOCOCCAL INFECTION
  28. FLUCLOXACILLIN [Suspect]
     Active Substance: FLUCLOXACILLIN
     Indication: HERPES SIMPLEX
  29. ACYCLOVIR [ACICLOVIR] [Suspect]
     Active Substance: ACYCLOVIR
     Indication: HERPES SIMPLEX
  30. GANCICLOVIR. [Suspect]
     Active Substance: GANCICLOVIR
     Indication: ENTEROBACTER INFECTION
     Dosage: UNK
     Route: 065
  31. GANCICLOVIR. [Suspect]
     Active Substance: GANCICLOVIR
     Indication: HERPES SIMPLEX
  32. TEMOCILLIN [Suspect]
     Active Substance: TEMOCILLIN
     Indication: HERPES SIMPLEX
  33. TEMOCILLIN [Suspect]
     Active Substance: TEMOCILLIN
     Indication: PSEUDOMONAS INFECTION

REACTIONS (1)
  - Liver injury [Unknown]
